FAERS Safety Report 10370264 (Version 1)
Quarter: 2014Q3

REPORT INFORMATION
  Report Type: Spontaneous
  Country: US (occurrence: None)
  Receive Date: 20140805
  Receipt Date: 20140805
  Transmission Date: 20150326
  Serious: Yes (Hospitalization, Other)
  Sender: FDA-Public Use
  Company Number: DAV-AE-NAP-14-02

PATIENT
  Age: 13 Year
  Sex: Female

DRUGS (6)
  1. PARACETAMOL [Concomitant]
     Active Substance: ACETAMINOPHEN
  2. NAPROXEN. [Suspect]
     Active Substance: NAPROXEN
     Indication: INTENTIONAL OVERDOSE
     Dosage: UNKNOWN
  3. BUPROPION [Concomitant]
     Active Substance: BUPROPION
  4. CITALOPRAM [Concomitant]
     Active Substance: CITALOPRAM HYDROBROMIDE
  5. DIPHENHYDRAMINE [Concomitant]
     Active Substance: DIPHENHYDRAMINE
  6. NAPROXEN. [Suspect]
     Active Substance: NAPROXEN
     Indication: SUICIDE ATTEMPT
     Dosage: UNKNOWN

REACTIONS (22)
  - Muscle rigidity [None]
  - Rhabdomyolysis [None]
  - Suicide attempt [None]
  - Hallucination [None]
  - Hypertension [None]
  - Sinus tachycardia [None]
  - Hyperthermia [None]
  - Myoclonus [None]
  - Intentional overdose [None]
  - Mydriasis [None]
  - Dry skin [None]
  - Mucosal dryness [None]
  - Pyrexia [None]
  - Abnormal behaviour [None]
  - Tachypnoea [None]
  - Gastrointestinal sounds abnormal [None]
  - Agitation [None]
  - Tremor [None]
  - Urinary retention [None]
  - Toxicity to various agents [None]
  - Flushing [None]
  - Body temperature decreased [None]
